FAERS Safety Report 4762647-2 (Version None)
Quarter: 2005Q3

REPORT INFORMATION
  Report Type: 
  Country: None (occurrence: None)
  Receive Date: 20050907
  Receipt Date: 20050901
  Transmission Date: 20060218
  Serious: Yes (Hospitalization)
  Sender: FDA-Public Use
  Company Number: 2005PK01604

PATIENT
  Age: 51 Year
  Sex: Female

DRUGS (13)
  1. TENORMIN [Suspect]
     Indication: CARDIOMYOPATHY
     Route: 048
  2. LANTUS [Interacting]
     Indication: DIABETES MELLITUS INSULIN-DEPENDENT
     Route: 058
     Dates: end: 20050802
  3. HUMALOG [Interacting]
     Indication: DIABETES MELLITUS INSULIN-DEPENDENT
     Route: 058
     Dates: end: 20050802
  4. SANDIMMUNE [Concomitant]
  5. CELLCEPT [Concomitant]
  6. PREDNISONE [Concomitant]
  7. ASPIRIN [Concomitant]
  8. METOLAZONE [Concomitant]
  9. LESCOL [Concomitant]
  10. VI-DE 3 [Concomitant]
  11. OMEPRAZOLE [Concomitant]
  12. MARCUMAR [Concomitant]
  13. RECORMON [Concomitant]

REACTIONS (2)
  - DRUG INTERACTION [None]
  - HYPOGLYCAEMIA [None]
